FAERS Safety Report 15242990 (Version 5)
Quarter: 2024Q3

REPORT INFORMATION
  Report Type: Spontaneous
  Country: BE (occurrence: BE)
  Receive Date: 20180806
  Receipt Date: 20240828
  Transmission Date: 20241016
  Serious: Yes (Death, Other)
  Sender: NOVARTIS
  Company Number: PHHY2017BE204453

PATIENT
  Age: 52 Year
  Sex: Female

DRUGS (31)
  1. CYCLOSPORINE [Suspect]
     Active Substance: CYCLOSPORINE
     Indication: Cryoglobulinaemia
     Dosage: UNK
     Route: 065
  2. CYCLOSPORINE [Suspect]
     Active Substance: CYCLOSPORINE
     Indication: Rheumatoid arthritis
     Dosage: UNK
     Route: 065
  3. CYCLOSPORINE [Suspect]
     Active Substance: CYCLOSPORINE
     Indication: Vasculitis
     Dosage: UNK
     Route: 065
  4. RITUXIMAB [Suspect]
     Active Substance: RITUXIMAB
     Indication: Vasculitis
     Dosage: UNK
     Route: 065
     Dates: start: 2009
  5. RITUXIMAB [Suspect]
     Active Substance: RITUXIMAB
     Indication: Cryoglobulinaemia
     Dosage: UNK
     Route: 065
     Dates: start: 2009, end: 2010
  6. RITUXIMAB [Suspect]
     Active Substance: RITUXIMAB
     Indication: Immunosuppression
     Dosage: UNK
     Route: 065
  7. RITUXIMAB [Suspect]
     Active Substance: RITUXIMAB
     Indication: Rheumatoid arthritis
  8. ETANERCEPT [Suspect]
     Active Substance: ETANERCEPT
     Indication: Vasculitis
     Dosage: UNK
     Route: 065
  9. ETANERCEPT [Suspect]
     Active Substance: ETANERCEPT
     Indication: Rheumatoid arthritis
  10. ETANERCEPT [Suspect]
     Active Substance: ETANERCEPT
     Indication: Hodgkin^s disease
  11. METHYLPREDNISOLONE [Suspect]
     Active Substance: METHYLPREDNISOLONE
     Indication: Cryoglobulinaemia
     Dosage: UNK
     Route: 065
  12. METHYLPREDNISOLONE [Suspect]
     Active Substance: METHYLPREDNISOLONE
     Indication: Rheumatoid arthritis
     Dosage: UNK
     Route: 065
  13. METHYLPREDNISOLONE [Suspect]
     Active Substance: METHYLPREDNISOLONE
     Indication: Vasculitis
     Dosage: UNK
     Route: 065
  14. METHYLPREDNISOLONE [Suspect]
     Active Substance: METHYLPREDNISOLONE
     Indication: Cryoglobulinaemia
     Dosage: UNK
     Route: 065
  15. PREDNISONE [Suspect]
     Active Substance: PREDNISONE
     Indication: Hodgkin^s disease
     Dosage: C-MOPP REGIMEN
     Route: 065
  16. PREDNISONE [Suspect]
     Active Substance: PREDNISONE
     Indication: Cryoglobulinaemia
     Dosage: UNK
     Route: 065
     Dates: start: 2007
  17. VINCRISTINE [Suspect]
     Active Substance: VINCRISTINE
     Indication: Hodgkin^s disease
     Dosage: C-MOPP REGIMEN
     Route: 065
  18. CYCLOPHOSPHAMIDE [Suspect]
     Active Substance: CYCLOPHOSPHAMIDE
     Indication: Hodgkin^s disease
     Dosage: C-MOPP REGIMEN
     Route: 065
  19. CYCLOPHOSPHAMIDE [Suspect]
     Active Substance: CYCLOPHOSPHAMIDE
     Dosage: UNK
     Route: 065
     Dates: start: 2007
  20. CYCLOPHOSPHAMIDE [Suspect]
     Active Substance: CYCLOPHOSPHAMIDE
     Dosage: UNK
     Route: 065
     Dates: start: 2007
  21. CYCLOPHOSPHAMIDE [Suspect]
     Active Substance: CYCLOPHOSPHAMIDE
     Dosage: UNK
     Route: 065
     Dates: start: 2007
  22. AMBISOME [Suspect]
     Active Substance: AMPHOTERICIN B
     Indication: Cutaneous leishmaniasis
     Dosage: 4 MG/KG, UNK
     Route: 065
  23. AMBISOME [Suspect]
     Active Substance: AMPHOTERICIN B
     Indication: Visceral leishmaniasis
     Dosage: UNK, QMO
     Route: 065
     Dates: start: 2009, end: 2009
  24. AMBISOME [Suspect]
     Active Substance: AMPHOTERICIN B
     Indication: Hodgkin^s disease
     Dosage: 5 MG/KG, UNK
     Route: 065
     Dates: start: 2009
  25. AMBISOME [Suspect]
     Active Substance: AMPHOTERICIN B
     Dosage: 1 DF,UNK UNK, Q1MONTH
     Route: 065
     Dates: start: 2009, end: 2009
  26. AMPHOTERICIN B [Suspect]
     Active Substance: AMPHOTERICIN B
     Indication: Visceral leishmaniasis
     Dosage: UNK
     Route: 065
     Dates: start: 2008
  27. MILTEFOSINE [Suspect]
     Active Substance: MILTEFOSINE
     Indication: Immunosuppression
     Dosage: 50 MG, UNK
     Route: 065
  28. MILTEFOSINE [Suspect]
     Active Substance: MILTEFOSINE
     Dosage: 100 MG QD
     Route: 065
  29. MILTEFOSINE [Suspect]
     Active Substance: MILTEFOSINE
     Dosage: 100 MG
     Route: 065
  30. PROCARBAZINE [Suspect]
     Active Substance: PROCARBAZINE
     Indication: Hodgkin^s disease
     Dosage: C-MOPP REGIMEN
     Route: 065
  31. PROCARBAZINE [Suspect]
     Active Substance: PROCARBAZINE
     Indication: Rheumatoid arthritis

REACTIONS (8)
  - Visceral leishmaniasis [Fatal]
  - Infection [Not Recovered/Not Resolved]
  - Mucocutaneous leishmaniasis [Not Recovered/Not Resolved]
  - Pathogen resistance [Unknown]
  - Gastrointestinal disorder [Unknown]
  - Drug ineffective for unapproved indication [Not Recovered/Not Resolved]
  - Off label use [Unknown]
  - Mucocutaneous leishmaniasis [Unknown]

NARRATIVE: CASE EVENT DATE: 20090101
